FAERS Safety Report 7748755-2 (Version None)
Quarter: 2011Q3

REPORT INFORMATION
  Report Type: 
  Country: None (occurrence: None)
  Receive Date: 20110914
  Receipt Date: 20110903
  Transmission Date: 20111222
  Serious: Yes (Death, Other)
  Sender: FDA-Public Use
  Company Number: TW-PAR PHARMACEUTICAL, INC-2011SCPR003213

PATIENT

DRUGS (3)
  1. DEXAMETHASONE [Suspect]
     Indication: CHEMOTHERAPY
     Dosage: UNK UNK, 2 CYCLES
     Route: 065
  2. VINCRISTINE [Suspect]
     Indication: CHEMOTHERAPY
     Dosage: UNK UNK, 2 CYCLES
     Route: 065
  3. ADRIAMYCIN PFS [Suspect]
     Indication: CHEMOTHERAPY
     Dosage: UNK UNK, 2 CYCLES
     Route: 065

REACTIONS (3)
  - SEPSIS [None]
  - DEATH [None]
  - CYTOMEGALOVIRUS INFECTION [None]
